FAERS Safety Report 8356030 (Version 2)
Quarter: 2012Q4

REPORT INFORMATION
  Report Type: 
  Country: US (occurrence: US)
  Receive Date: 20120126
  Receipt Date: 20121224
  Transmission Date: 20130627
  Serious: Yes (Death, Hospitalization, Other)
  Sender: FDA-Public Use
  Company Number: US-ELI_LILLY_AND_COMPANY-US201201006612

PATIENT
  Sex: Male

DRUGS (1)
  1. BYETTA [Suspect]
     Dosage: UNK, unknown
     Route: 058

REACTIONS (6)
  - Small cell lung cancer [Fatal]
  - Cardio-respiratory arrest [Fatal]
  - Hepatic cancer metastatic [Unknown]
  - Pancreatic carcinoma [Unknown]
  - Pancreatic mass [Unknown]
  - Pancreatitis [Unknown]
